FAERS Safety Report 17860848 (Version 1)
Quarter: 2020Q2

REPORT INFORMATION
  Report Type: Report from Study
  Country: CO (occurrence: CO)
  Receive Date: 20200604
  Receipt Date: 20200604
  Transmission Date: 20200714
  Serious: Yes (Hospitalization, Other)
  Sender: FDA-Public Use
  Company Number: NVSC2018CO003785

PATIENT
  Sex: Male

DRUGS (2)
  1. TASIGNA [Suspect]
     Active Substance: NILOTINIB
     Dosage: 2 DF, Q12H (200 MG)
     Route: 065
  2. TASIGNA [Suspect]
     Active Substance: NILOTINIB
     Indication: CHRONIC MYELOID LEUKAEMIA
     Dosage: 2 DF, Q12H (150 MG)
     Route: 065

REACTIONS (9)
  - Bone pain [Unknown]
  - Decreased appetite [Unknown]
  - Chronic myeloid leukaemia [Unknown]
  - Influenza [Unknown]
  - Inflammation [Unknown]
  - Vomiting [Unknown]
  - Malignant neoplasm progression [Unknown]
  - Haematemesis [Unknown]
  - White blood cell count increased [Unknown]

NARRATIVE: CASE EVENT DATE: 20180727
